FAERS Safety Report 4376630-2 (Version None)
Quarter: 2004Q2

REPORT INFORMATION
  Report Type: 
  Country: None (occurrence: None)
  Receive Date: 20040601
  Receipt Date: 20040303
  Transmission Date: 20050107
  Serious: No
  Sender: FDA-Public Use
  Company Number: 701727

PATIENT
  Age: 51 Year
  Sex: Female

DRUGS (4)
  1. AMEVIVE [Suspect]
     Indication: PSORIASIS
     Dosage: 15 MG QW IM
     Dates: start: 20040227, end: 20040227
  2. BENADRYL ^WARNER LAMBERT^ /USA/ [Concomitant]
  3. ZOLOFT [Concomitant]
  4. MS CONTIN [Concomitant]

REACTIONS (8)
  - ASTHENIA [None]
  - DIZZINESS [None]
  - FATIGUE [None]
  - HEADACHE [None]
  - HYPERHIDROSIS [None]
  - NASOPHARYNGITIS [None]
  - NAUSEA [None]
  - PSORIASIS [None]
